FAERS Safety Report 21739860 (Version 1)
Quarter: 2022Q4

REPORT INFORMATION
  Report Type: Spontaneous
  Country: BG (occurrence: BG)
  Receive Date: 20221216
  Receipt Date: 20221216
  Transmission Date: 20230113
  Serious: Yes (Death, Other)
  Sender: FDA-Public Use
  Company Number: BG-ROCHE-3062156

PATIENT
  Age: 60 Year
  Sex: Female
  Weight: 38 kg

DRUGS (8)
  1. BEVACIZUMAB [Suspect]
     Active Substance: BEVACIZUMAB
     Indication: Non-small cell lung cancer metastatic
     Dosage: 500 MILLIGRAM
     Route: 065
     Dates: start: 20211222
  2. ATEZOLIZUMAB [Suspect]
     Active Substance: ATEZOLIZUMAB
     Indication: Non-small cell lung cancer metastatic
     Dosage: 1200 MILLIGRAM
     Route: 041
     Dates: start: 20211222
  3. CARBOPLATIN [Suspect]
     Active Substance: CARBOPLATIN
     Indication: Non-small cell lung cancer metastatic
     Dosage: 250 MILLIGRAM
     Route: 065
     Dates: start: 20211222
  4. PACLITAXEL [Suspect]
     Active Substance: PACLITAXEL
     Indication: Non-small cell lung cancer metastatic
     Dosage: 200 MILLIGRAM
     Route: 065
     Dates: start: 20211222
  5. FLUTICASONE PROPIONATE [Concomitant]
     Active Substance: FLUTICASONE PROPIONATE
     Dosage: 0.5 DAY
  6. EBASTINE [Concomitant]
     Active Substance: EBASTINE
     Dosage: 0.5 DAY
     Dates: start: 20220226, end: 20220305
  7. GLYCOPYRRONIUM\INDACATEROL [Concomitant]
     Active Substance: GLYCOPYRRONIUM\INDACATEROL
     Dosage: UNK UNK, QD
  8. IBANDRONATE SODIUM [Concomitant]
     Active Substance: IBANDRONATE SODIUM
     Dosage: UNK UNK, QMO

REACTIONS (4)
  - Death [Fatal]
  - Neuropathy peripheral [Recovered/Resolved]
  - Pruritus [Recovered/Resolved]
  - Rash [Recovered/Resolved]

NARRATIVE: CASE EVENT DATE: 20220210
